FAERS Safety Report 12528822 (Version 1)
Quarter: 2016Q3

REPORT INFORMATION
  Report Type: Spontaneous
  Country: FR (occurrence: FR)
  Receive Date: 20160705
  Receipt Date: 20160705
  Transmission Date: 20161109
  Serious: Yes (Hospitalization)
  Sender: FDA-Public Use
  Company Number: FR-SA-2016SA120171

PATIENT
  Age: 68 Year
  Sex: Female

DRUGS (10)
  1. KETAMINE ^PANPHARMA^ [Suspect]
     Active Substance: KETAMINE
     Route: 042
     Dates: start: 20160604, end: 20160609
  2. TAZOBACTAM/PIPERACILLIN [Suspect]
     Active Substance: PIPERACILLIN SODIUM\TAZOBACTAM SODIUM
     Route: 042
     Dates: start: 20160605, end: 20160609
  3. AMLOR [Suspect]
     Active Substance: AMLODIPINE BESYLATE
     Route: 065
     Dates: start: 20160605, end: 20160609
  4. SUFENTA [Suspect]
     Active Substance: SUFENTANIL CITRATE
     Route: 042
     Dates: start: 20160525, end: 20160609
  5. ZYVOXID [Suspect]
     Active Substance: LINEZOLID
     Route: 042
     Dates: start: 20160605, end: 20160609
  6. HYPNOVEL [Suspect]
     Active Substance: MIDAZOLAM\MIDAZOLAM HYDROCHLORIDE
     Route: 042
     Dates: start: 20160525, end: 20160609
  7. LOVENOX [Suspect]
     Active Substance: ENOXAPARIN SODIUM
     Route: 058
     Dates: start: 20160525, end: 20160608
  8. DIPRIVAN [Suspect]
     Active Substance: PROPOFOL
     Route: 042
     Dates: start: 20160605, end: 20160609
  9. KETAMINE ^PANPHARMA^ [Suspect]
     Active Substance: KETAMINE
     Route: 042
     Dates: start: 20160525
  10. LOVENOX [Suspect]
     Active Substance: ENOXAPARIN SODIUM
     Route: 058
     Dates: start: 20160614, end: 20160617

REACTIONS (3)
  - Hepatocellular injury [Recovering/Resolving]
  - Gamma-glutamyltransferase increased [Recovering/Resolving]
  - Transaminases increased [Recovering/Resolving]

NARRATIVE: CASE EVENT DATE: 20160609
